FAERS Safety Report 14069070 (Version 8)
Quarter: 2019Q2

REPORT INFORMATION
  Report Type: Spontaneous
  Country: US (occurrence: US)
  Receive Date: 20171010
  Receipt Date: 20190530
  Transmission Date: 20190711
  Serious: Yes (Hospitalization)
  Sender: FDA-Public Use
  Company Number: US-INCYTE CORPORATION-2017IN008366

PATIENT

DRUGS (6)
  1. JAKAFI [Suspect]
     Active Substance: RUXOLITINIB
     Indication: MYELOFIBROSIS
     Dosage: 20 MILLIGRAM, BID
     Route: 048
     Dates: start: 20170811
  2. JAKAFI [Suspect]
     Active Substance: RUXOLITINIB
     Dosage: 10 MILLIGRAM, QD, MONDAY TO FRIDAY
     Route: 048
     Dates: start: 20171225
  3. JAKAFI [Suspect]
     Active Substance: RUXOLITINIB
     Dosage: 10 MG EVERY DAY EXCEPT FOR MONDAYS AND FRIDAYS SHE WILL TAKE 10 MG BID
     Route: 048
  4. JAKAFI [Suspect]
     Active Substance: RUXOLITINIB
     Dosage: 10 MILLIGRAM, QOD
     Route: 048
  5. JAKAFI [Suspect]
     Active Substance: RUXOLITINIB
     Dosage: 10 MG QD AND 10 MG BID ON MONDAYS
     Route: 048
  6. JAKAFI [Suspect]
     Active Substance: RUXOLITINIB
     Dosage: 10 MG BID ON MON AND FRI, 10 MG ALL OTHER DAYS
     Route: 048
     Dates: start: 20180122

REACTIONS (17)
  - Ovarian cyst [Unknown]
  - Breast pain [Unknown]
  - Sinusitis [Unknown]
  - Platelet count increased [Unknown]
  - Haemoglobin decreased [Unknown]
  - Feeling abnormal [Unknown]
  - Fatigue [Unknown]
  - Dizziness [Unknown]
  - Headache [Unknown]
  - Balance disorder [Not Recovered/Not Resolved]
  - Puncture site bruise [Unknown]
  - Weight increased [Unknown]
  - Product dose omission [Unknown]
  - Night sweats [Unknown]
  - Peripheral swelling [Unknown]
  - Abdominal pain [Unknown]
  - Inappropriate schedule of product administration [Unknown]

NARRATIVE: CASE EVENT DATE: 2017
